FAERS Safety Report 16877692 (Version 1)
Quarter: 2019Q4

REPORT INFORMATION
  Report Type: Spontaneous
  Country: US (occurrence: US)
  Receive Date: 20191002
  Receipt Date: 20191002
  Transmission Date: 20200122
  Serious: Yes (Hospitalization)
  Sender: FDA-Public Use
  Company Number: US-SLATE RUN PHARMACEUTICALS-SLTR-AE-19-92

PATIENT
  Age: 63 Year
  Sex: Female

DRUGS (6)
  1. HEPARIN [Concomitant]
     Active Substance: HEPARIN SODIUM
  2. VANCOMYCIN HCL FOR INJECTION USP [Suspect]
     Active Substance: VANCOMYCIN HYDROCHLORIDE
     Indication: STAPHYLOCOCCAL INFECTION
  3. HEPARIN [Concomitant]
     Active Substance: HEPARIN SODIUM
  4. APIXABAN [Concomitant]
     Active Substance: APIXABAN
     Indication: ENDOCARDITIS NONINFECTIVE
  5. CEFTRIAXONE. [Suspect]
     Active Substance: CEFTRIAXONE
  6. RIVAROXABAN [Concomitant]
     Active Substance: RIVAROXABAN

REACTIONS (4)
  - Endocarditis noninfective [Unknown]
  - Cerebrovascular accident [Unknown]
  - Gallbladder adenocarcinoma [Unknown]
  - Drug reaction with eosinophilia and systemic symptoms [Unknown]
